FAERS Safety Report 13380179 (Version 1)
Quarter: 2017Q1

REPORT INFORMATION
  Report Type: Spontaneous
  Country: US (occurrence: US)
  Receive Date: 20170328
  Receipt Date: 20170328
  Transmission Date: 20170429
  Serious: No
  Sender: FDA-Public Use
  Company Number: US-009507513-1702USA012219

PATIENT
  Age: 27 Year
  Sex: Female
  Weight: 86.62 kg

DRUGS (6)
  1. PROBIOTICS (UNSPECIFIED) [Concomitant]
     Active Substance: PROBIOTICS NOS
  2. LAMICTAL [Concomitant]
     Active Substance: LAMOTRIGINE
  3. NEXPLANON [Suspect]
     Active Substance: ETONOGESTREL
     Indication: CONTRACEPTION
     Dosage: UNK
     Route: 059
     Dates: start: 20170210
  4. PROAIR HFA [Concomitant]
     Active Substance: ALBUTEROL SULFATE
  5. VITAMINS (UNSPECIFIED) [Concomitant]
     Active Substance: VITAMINS
  6. KLONOPIN [Concomitant]
     Active Substance: CLONAZEPAM

REACTIONS (3)
  - Implant site pruritus [Not Recovered/Not Resolved]
  - Implant site rash [Not Recovered/Not Resolved]
  - Vaginal haemorrhage [Not Recovered/Not Resolved]

NARRATIVE: CASE EVENT DATE: 20170220
